FAERS Safety Report 10205216 (Version 3)
Quarter: 2014Q3

REPORT INFORMATION
  Report Type: Spontaneous
  Country: US (occurrence: US)
  Receive Date: 20140529
  Receipt Date: 20140710
  Transmission Date: 20150326
  Serious: Yes (Other)
  Sender: FDA-Public Use
  Company Number: US-PFIZER INC-2014145879

PATIENT
  Sex: Male

DRUGS (2)
  1. PROTONIX [Suspect]
     Active Substance: PANTOPRAZOLE SODIUM
     Dosage: UNK
  2. PROTONIX [Suspect]
     Active Substance: PANTOPRAZOLE SODIUM
     Dosage: UNK

REACTIONS (17)
  - Eye disorder [Unknown]
  - Asthenia [Unknown]
  - Angina pectoris [Unknown]
  - Dyspepsia [Unknown]
  - Dizziness [Unknown]
  - Muscular weakness [Unknown]
  - Toothache [Unknown]
  - Cough [Unknown]
  - Hypopnoea [Unknown]
  - Peripheral swelling [Unknown]
  - Throat tightness [Unknown]
  - Chest discomfort [Unknown]
  - Arthralgia [Unknown]
  - Erythema [Unknown]
  - Headache [Unknown]
  - Swelling face [Unknown]
  - Myalgia [Unknown]

NARRATIVE: CASE EVENT DATE: 20140525
